FAERS Safety Report 20828128 (Version 1)
Quarter: 2022Q2

REPORT INFORMATION
  Report Type: Spontaneous
  Country: DE (occurrence: None)
  Receive Date: 20220513
  Receipt Date: 20220513
  Transmission Date: 20220721
  Serious: Yes (Other)
  Sender: FDA-Public Use
  Company Number: DE-ROCHE-3091065

PATIENT
  Age: 61 Year
  Sex: Female

DRUGS (18)
  1. RITUXIMAB [Suspect]
     Active Substance: RITUXIMAB
     Indication: Follicular lymphoma
     Dosage: SIX CYCLES AS R-CHOP
     Route: 065
     Dates: start: 200508, end: 200601
  2. RITUXIMAB [Suspect]
     Active Substance: RITUXIMAB
     Indication: Follicular lymphoma
     Dosage: TWO CYCLES
     Route: 065
     Dates: start: 200508, end: 200601
  3. RITUXIMAB [Suspect]
     Active Substance: RITUXIMAB
     Indication: Diffuse large B-cell lymphoma
     Dosage: R-DEXA-BEAM
     Route: 065
     Dates: start: 201007, end: 201007
  4. RITUXIMAB [Suspect]
     Active Substance: RITUXIMAB
     Dosage: R-DEXA-BEAM
     Route: 065
     Dates: start: 201008, end: 201008
  5. RITUXIMAB [Suspect]
     Active Substance: RITUXIMAB
     Dosage: R-BEAM
     Route: 065
     Dates: start: 2010, end: 2010
  6. RITUXIMAB [Suspect]
     Active Substance: RITUXIMAB
     Dosage: WITH BENDAMUSTIN
     Route: 065
     Dates: start: 201406, end: 201412
  7. RITUXIMAB [Suspect]
     Active Substance: RITUXIMAB
     Dosage: WITH REVLEMID
     Route: 065
     Dates: start: 201901, end: 201902
  8. CYCLOPHOSPHAMIDE [Suspect]
     Active Substance: CYCLOPHOSPHAMIDE
     Indication: Follicular lymphoma
     Dosage: SIX CYCLES AS R-CHOP
     Route: 065
     Dates: start: 200508, end: 200601
  9. DOXORUBICIN HYDROCHLORIDE [Suspect]
     Active Substance: DOXORUBICIN HYDROCHLORIDE
     Indication: Follicular lymphoma
     Dosage: SIX CYCLES AS R-CHOP
     Route: 065
     Dates: start: 200508, end: 200601
  10. VINCRISTINE SULFATE [Suspect]
     Active Substance: VINCRISTINE SULFATE
     Indication: Follicular lymphoma
     Dosage: SIX CYCLES AS R-CHOP
     Route: 065
     Dates: start: 200508, end: 200601
  11. PREDNISONE [Suspect]
     Active Substance: PREDNISONE
     Indication: Follicular lymphoma
     Dosage: SIX CYCLES AS R-CHOP
     Route: 065
     Dates: start: 200508, end: 200601
  12. DEXAMETHASONE [Suspect]
     Active Substance: DEXAMETHASONE
     Indication: Follicular lymphoma
     Dosage: R-DEXA-BEAM
     Route: 065
     Dates: start: 201007, end: 201007
  13. DEXAMETHASONE [Suspect]
     Active Substance: DEXAMETHASONE
     Dosage: R-DEXA-BEAM
     Route: 065
     Dates: start: 201008, end: 201008
  14. BEAM [Suspect]
     Active Substance: SODIUM FLUORIDE
     Indication: Follicular lymphoma
     Dosage: R-DEXA-BEAM
     Route: 065
     Dates: start: 201007, end: 201007
  15. BEAM [Suspect]
     Active Substance: SODIUM FLUORIDE
     Dosage: R-DEXA-BEAM
     Route: 065
     Dates: start: 201008, end: 201008
  16. BEAM [Suspect]
     Active Substance: SODIUM FLUORIDE
     Dosage: R-BEAM
     Route: 065
     Dates: start: 2010, end: 2010
  17. BENDAMUSTINE [Suspect]
     Active Substance: BENDAMUSTINE
     Indication: Follicular lymphoma
     Dosage: WITH RITUXIMAB
     Route: 065
     Dates: start: 201406, end: 201412
  18. REVLIMID [Suspect]
     Active Substance: LENALIDOMIDE
     Indication: Diffuse large B-cell lymphoma
     Dosage: WITH RITUXIMAB
     Route: 065
     Dates: start: 201901, end: 201902

REACTIONS (4)
  - Uterine prolapse [Unknown]
  - Vaginal prolapse [Not Recovered/Not Resolved]
  - Thrombocytopenia [Unknown]
  - Lymphoma [Not Recovered/Not Resolved]

NARRATIVE: CASE EVENT DATE: 20130101
